FAERS Safety Report 7281650-4 (Version None)
Quarter: 2011Q1

REPORT INFORMATION
  Report Type: 
  Country: None (occurrence: None)
  Receive Date: 20110208
  Receipt Date: 20110202
  Transmission Date: 20110831
  Serious: Yes (Life-Threatening, Hospitalization, Other)
  Sender: FDA-Public Use
  Company Number: SI-ELI_LILLY_AND_COMPANY-SI201009002450

PATIENT
  Sex: Female

DRUGS (3)
  1. CIPRALEX [Concomitant]
     Indication: DEPRESSION
     Dosage: UNK, UNKNOWN
     Route: 065
  2. OLANZAPINE [Suspect]
     Indication: DEPRESSION
     Dosage: UNK, UNKNOWN
     Route: 065
  3. HELEX [Concomitant]
     Dosage: UNK, UNKNOWN
     Route: 065

REACTIONS (5)
  - SUICIDAL BEHAVIOUR [None]
  - AGITATION [None]
  - OFF LABEL USE [None]
  - BACTERIAL INFECTION [None]
  - NECROSIS [None]
